FAERS Safety Report 9122453 (Version 1)
Quarter: 2013Q1

REPORT INFORMATION
  Report Type: Other
  Country: AT (occurrence: AT)
  Receive Date: 20130227
  Receipt Date: 20130227
  Transmission Date: 20140127
  Serious: Yes (Hospitalization)
  Sender: FDA-Public Use
  Company Number: CZ-BRISTOL-MYERS SQUIBB COMPANY-17408329

PATIENT
  Age: 74 Year
  Sex: Female

DRUGS (1)
  1. METFORMIN HCL [Suspect]
     Indication: DIABETES MELLITUS
     Route: 048

REACTIONS (3)
  - Enteritis [Recovered/Resolved]
  - Acute prerenal failure [Recovered/Resolved]
  - Raynaud^s phenomenon [Recovered/Resolved]
